FAERS Safety Report 11926532 (Version 1)
Quarter: 2016Q1

REPORT INFORMATION
  Report Type: Report from Study
  Country: US (occurrence: US)
  Receive Date: 20160119
  Receipt Date: 20160119
  Transmission Date: 20160526
  Serious: Yes (Hospitalization)
  Sender: FDA-Public Use
  Company Number: US-ABBVIE-16K-163-1536577-00

PATIENT
  Age: 70 Year
  Sex: Female
  Weight: 98.06 kg

DRUGS (6)
  1. HUMIRA [Suspect]
     Active Substance: ADALIMUMAB
     Indication: RHEUMATOID ARTHRITIS
     Route: 058
     Dates: start: 2015
  2. BYSTOLIC [Concomitant]
     Active Substance: NEBIVOLOL HYDROCHLORIDE
     Indication: HYPERTENSION
  3. ASPIRIN. [Concomitant]
     Active Substance: ASPIRIN
     Indication: CARDIAC DISORDER
  4. DYAZIDE [Concomitant]
     Active Substance: HYDROCHLOROTHIAZIDE\TRIAMTERENE
     Indication: DIURETIC THERAPY
  5. VITAMIN D [Concomitant]
     Active Substance: CHOLECALCIFEROL
     Indication: VITAMIN SUPPLEMENTATION
  6. PREMARIN [Concomitant]
     Active Substance: ESTROGENS, CONJUGATED
     Indication: HORMONE REPLACEMENT THERAPY

REACTIONS (8)
  - Dyspepsia [Recovered/Resolved]
  - Pneumonia [Recovered/Resolved]
  - Vomiting [Recovered/Resolved]
  - Hiatus hernia [Recovered/Resolved]
  - Procedural pneumothorax [Recovered/Resolved]
  - Suture related complication [Recovered/Resolved]
  - Postoperative wound complication [Recovered/Resolved]
  - Postoperative wound infection [Recovered/Resolved]

NARRATIVE: CASE EVENT DATE: 2015
